FAERS Safety Report 24581217 (Version 2)
Quarter: 2024Q4

REPORT INFORMATION
  Report Type: Spontaneous
  Country: DE (occurrence: DE)
  Receive Date: 20241105
  Receipt Date: 20241113
  Transmission Date: 20250115
  Serious: Yes (Hospitalization)
  Sender: TORRENT PHARMA INC.
  Company Number: DE-MLMSERVICE-20241021-PI229160-00196-1

PATIENT
  Age: 8 Year
  Sex: Female
  Weight: 29 kg

DRUGS (2)
  1. LEVETIRACETAM [Suspect]
     Active Substance: LEVETIRACETAM
     Indication: Generalised tonic-clonic seizure
     Dosage: 100MG/ML INCREASED TO 2X1000MG.
     Route: 048
     Dates: start: 2024
  2. SULTHIAME [Concomitant]
     Active Substance: SULTHIAME
     Indication: Generalised tonic-clonic seizure
     Dosage: UNKNOWN
     Route: 065

REACTIONS (2)
  - Electroencephalogram abnormal [Recovering/Resolving]
  - Anticonvulsant drug level increased [Unknown]

NARRATIVE: CASE EVENT DATE: 20240101
